FAERS Safety Report 8915614 (Version 1)
Quarter: 2012Q4

REPORT INFORMATION
  Report Type: 
  Country: KR (occurrence: KR)
  Receive Date: 20121119
  Receipt Date: 20121119
  Transmission Date: 20130627
  Serious: Yes (Death)
  Sender: FDA-Public Use
  Company Number: KR-COVIDIEN/TYCO HEALTHCARE/MALLINCKRODT-T201203892

PATIENT
  Sex: Female

DRUGS (2)
  1. OPTIRAY [Suspect]
     Indication: ANGIOGRAM PULMONARY
     Dosage: 50 ml, single 4 mL/sec
     Route: 042
  2. SALINE                             /00075401/ [Concomitant]
     Indication: ANGIOGRAM PULMONARY
     Dosage: 50 mL, single 4 mL/sec

REACTIONS (1)
  - Renal failure acute [Fatal]
